FAERS Safety Report 17228929 (Version 3)
Quarter: 2020Q1

REPORT INFORMATION
  Report Type: Report from Study
  Country: US (occurrence: US)
  Receive Date: 20200103
  Receipt Date: 20200318
  Transmission Date: 20200409
  Serious: Yes (Death, Hospitalization, Other)
  Sender: FDA-Public Use
  Company Number: US-BAYER-2019-238527

PATIENT
  Age: 47 Year
  Sex: Female

DRUGS (2)
  1. ADEMPAS [Suspect]
     Active Substance: RIOCIGUAT
     Indication: PULMONARY ARTERIAL HYPERTENSION
     Dosage: 1 MG, TID
     Route: 048
     Dates: start: 20191206
  2. ADEMPAS [Suspect]
     Active Substance: RIOCIGUAT
     Indication: PULMONARY ARTERIAL HYPERTENSION
     Dosage: 0.5 MG, TID
     Route: 048

REACTIONS (8)
  - Hypotension [None]
  - Oxygen saturation decreased [None]
  - Abdominal pain upper [Unknown]
  - Pruritus [None]
  - Paracentesis [None]
  - Respiratory failure [Fatal]
  - Pulmonary arterial hypertension [Fatal]
  - Dyspnoea exertional [Unknown]

NARRATIVE: CASE EVENT DATE: 20191231
